FAERS Safety Report 9868459 (Version 1)
Quarter: 2014Q1

REPORT INFORMATION
  Report Type: Spontaneous
  Country: IT (occurrence: IT)
  Receive Date: 20140204
  Receipt Date: 20140204
  Transmission Date: 20141002
  Serious: Yes (Death)
  Sender: FDA-Public Use
  Company Number: PHHY2014IT010777

PATIENT
  Sex: Male

DRUGS (2)
  1. CARBOPLATIN [Suspect]
     Indication: SQUAMOUS CELL CARCINOMA OF LUNG
     Dosage: 400 MG, CYCLIC
     Route: 042
     Dates: start: 20131123, end: 20131218
  2. GEMCITABINE [Interacting]
     Indication: SQUAMOUS CELL CARCINOMA OF LUNG
     Dosage: 1880 MG, CYCLIC
     Route: 042
     Dates: start: 20131122, end: 20131217

REACTIONS (2)
  - Cardiogenic shock [Fatal]
  - Acute myocardial infarction [Fatal]
